FAERS Safety Report 7930356-4 (Version None)
Quarter: 2011Q4

REPORT INFORMATION
  Report Type: 
  Country: None (occurrence: None)
  Receive Date: 20111117
  Receipt Date: 20111104
  Transmission Date: 20120403
  Serious: Yes (Other)
  Sender: FDA-Public Use
  Company Number: 1000025401

PATIENT
  Age: 75 Year
  Sex: Male
  Weight: 74 kg

DRUGS (3)
  1. ROFLUMILAST (ROFLUMILAST) (500 MICROGRAM, TABLETS) [Suspect]
     Indication: CHRONIC OBSTRUCTIVE PULMONARY DISEASE
     Dosage: 500 MCG (500 MCG, 1 IN 1 D), ORAL
     Route: 048
     Dates: start: 20110901, end: 20110901
  2. INHALERS (INHALERS) (INHALANT) (INHALANT) [Concomitant]
  3. ANTIBIOTICS (ANTIBIOTICS) (ANTIBIOTICS) [Concomitant]

REACTIONS (2)
  - FACE OEDEMA [None]
  - HYPERSENSITIVITY [None]
